FAERS Safety Report 23118176 (Version 1)
Quarter: 2023Q4

REPORT INFORMATION
  Report Type: Spontaneous
  Country: GB (occurrence: GB)
  Receive Date: 20231027
  Receipt Date: 20231027
  Transmission Date: 20240109
  Serious: Yes (Disabling, Other)
  Sender: FDA-Public Use
  Company Number: None

PATIENT
  Age: 51 Year
  Sex: Male
  Weight: 58 kg

DRUGS (1)
  1. LEVOFLOXACIN [Suspect]
     Active Substance: LEVOFLOXACIN
     Indication: Bacterial prostatitis
     Route: 065
     Dates: start: 20140618

REACTIONS (33)
  - Product prescribing error [Unknown]
  - Illness [Not Recovered/Not Resolved]
  - Vision blurred [Unknown]
  - Vitreous floaters [Unknown]
  - Panic attack [Unknown]
  - Paranoia [Unknown]
  - Psychotic disorder [Unknown]
  - Depression [Unknown]
  - Anxiety [Unknown]
  - Muscle atrophy [Unknown]
  - Abdominal discomfort [Unknown]
  - Abnormal loss of weight [Unknown]
  - Nail disorder [Unknown]
  - Skin disorder [Unknown]
  - Pruritus [Unknown]
  - Muscle contractions involuntary [Unknown]
  - Headache [Unknown]
  - Migraine [Unknown]
  - Asthenia [Unknown]
  - Neuropathy peripheral [Unknown]
  - Photophobia [Unknown]
  - Feeling cold [Unknown]
  - Chest pain [Unknown]
  - Arthralgia [Unknown]
  - Fatigue [Unknown]
  - Exercise tolerance decreased [Unknown]
  - Alopecia [Unknown]
  - Immune system disorder [Unknown]
  - Condition aggravated [Unknown]
  - Congenital cystic kidney disease [Unknown]
  - Fungal infection [Unknown]
  - Brain fog [Unknown]
  - Disturbance in attention [Unknown]

NARRATIVE: CASE EVENT DATE: 20140623
